FAERS Safety Report 17676778 (Version 2)
Quarter: 2020Q2

REPORT INFORMATION
  Report Type: Spontaneous
  Country: JP (occurrence: JP)
  Receive Date: 20200416
  Receipt Date: 20200618
  Transmission Date: 20200714
  Serious: Yes (Other)
  Sender: FDA-Public Use
  Company Number: JP-009507513-2004JPN000747J

PATIENT
  Age: 84 Year
  Sex: Female
  Weight: 32 kg

DRUGS (7)
  1. LIMAPROST ALFADEX [Concomitant]
     Active Substance: LIMAPROST
     Dosage: 5 MICROGRAM
     Route: 048
     Dates: start: 20191219, end: 20200218
  2. LYRICA [Concomitant]
     Active Substance: PREGABALIN
     Dosage: 25 MILLIGRAM
     Route: 048
     Dates: end: 20200218
  3. BELSOMRA [Suspect]
     Active Substance: SUVOREXANT
     Indication: INSOMNIA
     Dosage: 10 MILLIGRAM, QD
     Route: 048
     Dates: start: 20200309, end: 20200315
  4. BELSOMRA [Suspect]
     Active Substance: SUVOREXANT
     Indication: DELIRIUM
     Dosage: 10 MILLIGRAM, QD
     Route: 048
     Dates: start: 20191218, end: 20200217
  5. ALFACALCIDOL [Concomitant]
     Active Substance: ALFACALCIDOL
     Dosage: 0.25 MICROGRAM
     Route: 048
     Dates: start: 20191219, end: 20200218
  6. JUVELA N [Concomitant]
     Active Substance: TOCOPHERYL NICOTINATE, D-.ALPHA.
     Dosage: 100 MILLIGRAM
     Route: 048
     Dates: start: 20191219, end: 20200218
  7. MAGNESIUM (UNSPECIFIED) [Concomitant]
     Active Substance: MAGNESIUM
     Dosage: 250 MILLIGRAM
     Route: 048
     Dates: start: 20191219

REACTIONS (2)
  - Neutrophil count decreased [Recovering/Resolving]
  - Neutrophil count decreased [Recovering/Resolving]

NARRATIVE: CASE EVENT DATE: 20200120
